FAERS Safety Report 8910707 (Version 1)
Quarter: 2012Q4

REPORT INFORMATION
  Report Type: Spontaneous
  Country: MY (occurrence: None)
  Receive Date: 20121107
  Receipt Date: 20121107
  Transmission Date: 20130627
  Serious: No
  Sender: FDA-Public Use
  Company Number: 2012MY007111

PATIENT
  Sex: Female

DRUGS (3)
  1. ALOXI [Suspect]
     Indication: PROPHYLAXIS OF NAUSEA AND VOMITING
     Route: 042
  2. CISPLATIN (CISPLATIN) [Concomitant]
  3. EMEND (APREPITANT) [Concomitant]

REACTIONS (1)
  - Palpitations [None]
